FAERS Safety Report 8144058-5 (Version None)
Quarter: 2012Q1

REPORT INFORMATION
  Report Type: 
  Country: None (occurrence: None)
  Receive Date: 20120217
  Receipt Date: 20120215
  Transmission Date: 20120608
  Serious: Yes (Hospitalization)
  Sender: FDA-Public Use
  Company Number: US-B.I. PHARMACEUTICALS,INC./RIDGEFIELD-2012-BP-02946BP

PATIENT
  Age: 86 Year
  Sex: Male

DRUGS (4)
  1. ZOCOR [Concomitant]
     Indication: BLOOD CHOLESTEROL INCREASED
  2. TAMSULOSIN HCL [Concomitant]
  3. PRADAXA [Suspect]
     Dosage: 300 MG
     Route: 048
     Dates: start: 20110901
  4. METOPROLOL TARTRATE [Concomitant]

REACTIONS (2)
  - PHARYNGEAL HAEMORRHAGE [None]
  - PATHOLOGICAL FRACTURE [None]
